FAERS Safety Report 12086589 (Version 1)
Quarter: 2016Q1

REPORT INFORMATION
  Report Type: Spontaneous
  Country: None (occurrence: US)
  Receive Date: 20160217
  Receipt Date: 20160217
  Transmission Date: 20160526
  Serious: No
  Sender: FDA-Public Use
  Company Number: US-ALLERGAN-1503823US

PATIENT
  Age: 71 Year
  Sex: Male
  Weight: 74.83 kg

DRUGS (2)
  1. RESTASIS [Suspect]
     Active Substance: CYCLOSPORINE
     Indication: DRY EYE
     Dosage: 2 GTT, BID
     Route: 047
     Dates: start: 20140826
  2. PRED FORTE [Concomitant]
     Active Substance: PREDNISOLONE ACETATE
     Indication: EYE DISORDER
     Dosage: UNK

REACTIONS (4)
  - Eye pain [Recovered/Resolved]
  - Corneal reflex decreased [Unknown]
  - Drug ineffective [Unknown]
  - Instillation site pain [Recovered/Resolved]

NARRATIVE: CASE EVENT DATE: 201409
